FAERS Safety Report 5825501-0 (Version None)
Quarter: 2008Q3

REPORT INFORMATION
  Report Type: 
  Country: None (occurrence: None)
  Receive Date: 20080724
  Receipt Date: 20080724
  Transmission Date: 20090109
  Serious: Yes (Life-Threatening, Disabling)
  Sender: FDA-Public Use
  Company Number: None

PATIENT
  Age: 79 Year
  Sex: Female
  Weight: 81.6475 kg

DRUGS (3)
  1. DIGITEK,  0.125 MG, BERTEK,  UDL LABORATORIES [Suspect]
     Indication: CARDIAC FAILURE
     Dosage: 0.125  PER DAY
     Dates: start: 20060101, end: 20080401
  2. TOPROL-XL [Concomitant]
  3. SPIRONOLACT [Concomitant]

REACTIONS (21)
  - ABDOMINAL PAIN UPPER [None]
  - ASTHENIA [None]
  - CHLOROPSIA [None]
  - CONTUSION [None]
  - DIARRHOEA [None]
  - DISORIENTATION [None]
  - DIZZINESS [None]
  - DRY EYE [None]
  - DYSPNOEA [None]
  - ERYTHROPSIA [None]
  - EYE IRRITATION [None]
  - FATIGUE [None]
  - HEADACHE [None]
  - HEARING IMPAIRED [None]
  - IMPAIRED DRIVING ABILITY [None]
  - NAUSEA [None]
  - PRESYNCOPE [None]
  - RASH MACULAR [None]
  - VISION BLURRED [None]
  - VISUAL IMPAIRMENT [None]
  - XANTHOPSIA [None]
